FAERS Safety Report 25699388 (Version 2)
Quarter: 2025Q3

REPORT INFORMATION
  Report Type: Spontaneous
  Country: EU (occurrence: EU)
  Receive Date: 20250819
  Receipt Date: 20250902
  Transmission Date: 20251020
  Serious: Yes (Death, Hospitalization, Other)
  Sender: RANBAXY
  Company Number: EU-SUN PHARMACEUTICAL INDUSTRIES INC-2025R1-522746

PATIENT
  Age: 46 Year
  Sex: Female

DRUGS (1)
  1. HYDROXYCHLOROQUINE [Suspect]
     Active Substance: HYDROXYCHLOROQUINE
     Indication: Rheumatoid arthritis
     Dosage: 200 MILLIGRAM, BID
     Route: 048

REACTIONS (5)
  - Hypertrophic cardiomyopathy [Fatal]
  - Toxicity to various agents [Fatal]
  - Paroxysmal atrioventricular block [Fatal]
  - Ventricular hypertrophy [Fatal]
  - Cardiogenic shock [Fatal]
